FAERS Safety Report 19313915 (Version 1)
Quarter: 2021Q2

REPORT INFORMATION
  Report Type: Report from Study
  Country: US (occurrence: US)
  Receive Date: 20210527
  Receipt Date: 20210527
  Transmission Date: 20210717
  Serious: Yes (Death, Hospitalization, Other)
  Sender: FDA-Public Use
  Company Number: US-MYLANLABS-2021M1030599

PATIENT
  Sex: Male

DRUGS (4)
  1. MELPHALAN. [Suspect]
     Active Substance: MELPHALAN
     Indication: CONGENITAL RETINOBLASTOMA
     Dosage: CYCLE OAC REGIMEN: 3 CYCLES IN THE RIGHT EYE AND 2 ?..
     Route: 013
  2. MELPHALAN. [Concomitant]
     Active Substance: MELPHALAN
     Indication: CONGENITAL RETINOBLASTOMA
     Dosage: IN THE LEFT EYE
  3. CARBOPLATIN. [Suspect]
     Active Substance: CARBOPLATIN
     Indication: CONGENITAL RETINOBLASTOMA
     Dosage: OAC REGIMEN: 3 CYCLES IN THE RIGHT EYE AND 2 ??
     Route: 013
  4. TOPOTECAN [Suspect]
     Active Substance: TOPOTECAN HYDROCHLORIDE
     Indication: CONGENITAL RETINOBLASTOMA
     Dosage: CYCLE, OAC REGIMEN: 3 CYCLES IN THE RIGHT EYE AND 2 ??..
     Route: 013

REACTIONS (4)
  - Off label use [Unknown]
  - Haematotoxicity [Unknown]
  - Sepsis [Fatal]
  - Febrile neutropenia [Unknown]
